FAERS Safety Report 8572465-5 (Version None)
Quarter: 2012Q3

REPORT INFORMATION
  Report Type: 
  Country: None (occurrence: None)
  Receive Date: 20120806
  Receipt Date: 20120806
  Transmission Date: 20120928
  Serious: Yes (Death)
  Sender: FDA-Public Use
  Company Number: DK-JNJFOC-20120801322

PATIENT

DRUGS (23)
  1. DOXORUBICIN HCL [Suspect]
     Dosage: ON DAY 1
     Route: 042
  2. VINCRISTINE [Suspect]
     Dosage: ON DAY 1
     Route: 065
  3. PREDNISOLONE [Suspect]
     Dosage: ON DAYS 1-5
     Route: 065
  4. CYCLOPHOSPHAMIDE [Suspect]
     Dosage: ON DAY 1
     Route: 065
  5. CYTARABINE [Suspect]
     Indication: MANTLE CELL LYMPHOMA
     Dosage: 3 OR 2 G/M2, FOUR-3 HOUR INFUSIONS
     Route: 042
  6. CYTARABINE [Suspect]
     Dosage: DAYS 2-5
     Route: 042
  7. CARMUSTINE [Suspect]
     Indication: MANTLE CELL LYMPHOMA
     Dosage: ON DAY 1
     Route: 065
  8. MELPHALAN HYDROCHLORIDE [Suspect]
     Indication: MANTLE CELL LYMPHOMA
     Dosage: DAY 6
     Route: 065
  9. VINCRISTINE [Suspect]
     Dosage: ON DAY 1
     Route: 065
  10. RITUXIMAB [Suspect]
     Dosage: GIVEN ON DAY 1 FROM CYCLE 4 AND IN CYCLE 6 ON DAY 9
     Route: 065
  11. RITUXIMAB [Suspect]
     Dosage: GIVEN ON DAY 1 FROM CYCLE 4 AND IN CYCLE 6 ON DAY 9
     Route: 065
  12. CYCLOPHOSPHAMIDE [Suspect]
     Indication: MANTLE CELL LYMPHOMA
     Dosage: ON DAYS 2-5
     Route: 065
  13. CYTARABINE [Suspect]
     Dosage: 3 OR 2 G/M2, FOUR-3 HOUR INFUSIONS
     Route: 042
  14. CYTARABINE [Suspect]
     Dosage: 3 OR 2 G/M2, FOUR-3 HOUR INFUSIONS
     Route: 042
  15. CYCLOPHOSPHAMIDE [Suspect]
     Dosage: ON DAY 1
     Route: 065
  16. DOXORUBICIN HCL [Suspect]
     Indication: MANTLE CELL LYMPHOMA
     Dosage: ON DAY 1
     Route: 042
  17. DOXORUBICIN HCL [Suspect]
     Dosage: ON DAY 1
     Route: 042
  18. VINCRISTINE [Suspect]
     Indication: MANTLE CELL LYMPHOMA
     Dosage: ON DAY 1
     Route: 065
  19. PREDNISOLONE [Suspect]
     Indication: MANTLE CELL LYMPHOMA
     Dosage: ON DAYS 1-5
     Route: 065
  20. PREDNISOLONE [Suspect]
     Dosage: ON DAYS 1-5
     Route: 065
  21. CYCLOPHOSPHAMIDE [Suspect]
     Dosage: ON DAY 1
     Route: 065
  22. RITUXIMAB [Suspect]
     Indication: MANTLE CELL LYMPHOMA
     Dosage: GIVEN ON DAY 1 FROM CYCLE 4 AND IN CYCLE 6 ON DAY 9
     Route: 065
  23. ETOPOSIDE [Suspect]
     Indication: MANTLE CELL LYMPHOMA
     Dosage: ON DAYS 2-5
     Route: 065

REACTIONS (1)
  - CARDIAC FAILURE [None]
